FAERS Safety Report 5572199-5 (Version None)
Quarter: 2007Q4

REPORT INFORMATION
  Report Type: 
  Country: None (occurrence: None)
  Receive Date: 20071221
  Receipt Date: 20071213
  Transmission Date: 20080405
  Serious: Yes (Other)
  Sender: FDA-Public Use
  Company Number: BE-PFIZER INC-2007104258

PATIENT
  Sex: Female

DRUGS (2)
  1. MEDROL [Suspect]
     Route: 048
  2. AUGMENTIN '250' [Concomitant]

REACTIONS (1)
  - ANAPHYLACTIC SHOCK [None]
